FAERS Safety Report 21779741 (Version 1)
Quarter: 2022Q4

REPORT INFORMATION
  Report Type: Spontaneous
  Country: None (occurrence: BR)
  Receive Date: 20221226
  Receipt Date: 20221226
  Transmission Date: 20230112
  Serious: Yes (Life-Threatening, Hospitalization)
  Sender: FDA-Public Use
  Company Number: BR-Nostrum Laboratories, Inc.-2136175

PATIENT

DRUGS (1)
  1. DAPSONE [Suspect]
     Active Substance: DAPSONE
     Indication: Product used for unknown indication
     Route: 048

REACTIONS (1)
  - Drug reaction with eosinophilia and systemic symptoms [Unknown]
